FAERS Safety Report 9301824 (Version 1)
Quarter: 2012Q4

REPORT INFORMATION
  Report Type: Spontaneous
  Country: JP (occurrence: None)
  Receive Date: 20121109
  Receipt Date: 20121109
  Transmission Date: 20130627
  Serious: Yes (Life-Threatening)
  Sender: FDA-Public Use
  Company Number: 2012S1000409

PATIENT
  Age: 81 Year
  Sex: Male

DRUGS (4)
  1. CUBICIN (DAPTOMYCIN) [Suspect]
     Indication: SEPSIS
     Route: 042
     Dates: start: 20120418, end: 20120418
  2. CARVEDILOL [Concomitant]
  3. OLMETEC [Concomitant]
  4. AMLODIPINE BESILATE [Concomitant]

REACTIONS (1)
  - Ventricular extrasystoles [None]
